FAERS Safety Report 16807995 (Version 1)
Quarter: 2019Q3

REPORT INFORMATION
  Report Type: Spontaneous
  Country: GB (occurrence: GB)
  Receive Date: 20190916
  Receipt Date: 20190916
  Transmission Date: 20191005
  Serious: Yes (Other)
  Sender: FDA-Public Use
  Company Number: GB-LUPIN PHARMACEUTICALS INC.-2019-05861

PATIENT
  Age: 11 Year
  Sex: Female

DRUGS (7)
  1. LEVONORGESTREL. [Suspect]
     Active Substance: LEVONORGESTREL
     Indication: ORAL CONTRACEPTION
     Dosage: UNK
     Route: 048
  2. NORETHISTERONE ACETATE [Interacting]
     Active Substance: NORETHINDRONE ACETATE
     Indication: ORAL CONTRACEPTION
     Dosage: UNK
     Route: 048
  3. LEVETIRACETAM. [Suspect]
     Active Substance: LEVETIRACETAM
     Indication: MYOCLONUS
     Dosage: UNK
     Route: 065
  4. LAMOTRIGINE. [Interacting]
     Active Substance: LAMOTRIGINE
     Indication: EPILEPSY
     Dosage: 400 MG, QD
     Route: 065
  5. ZONISAMIDE. [Concomitant]
     Active Substance: ZONISAMIDE
     Indication: EPILEPSY
     Dosage: 100 MG, QD
     Route: 065
  6. LAMOTRIGINE. [Interacting]
     Active Substance: LAMOTRIGINE
     Dosage: 400 MG, 1X/DAY
     Route: 065
  7. ZONISAMIDE. [Concomitant]
     Active Substance: ZONISAMIDE
     Dosage: 400 MILLIGRAM, QD
     Route: 065

REACTIONS (4)
  - Sedation [Unknown]
  - Condition aggravated [Unknown]
  - Petit mal epilepsy [Unknown]
  - Drug interaction [Unknown]
